FAERS Safety Report 6239382-7 (Version None)
Quarter: 2009Q2

REPORT INFORMATION
  Report Type: 
  Country: None (occurrence: None)
  Receive Date: 20090622
  Receipt Date: 20090616
  Transmission Date: 20091009
  Serious: Yes (Other)
  Sender: FDA-Public Use
  Company Number: NZ-PFIZER INC-2009204927

PATIENT

DRUGS (1)
  1. ZELDOX [Suspect]
     Dosage: 20 MG, 2X/DAY

REACTIONS (1)
  - MIGRAINE [None]
